FAERS Safety Report 9921352 (Version 1)
Quarter: 2014Q1

REPORT INFORMATION
  Report Type: Spontaneous
  Country: US (occurrence: None)
  Receive Date: 20140221
  Receipt Date: 20140221
  Transmission Date: 20141002
  Serious: Yes (Hospitalization)
  Sender: FDA-Public Use
  Company Number: None

PATIENT
  Age: 84 Year
  Sex: Male
  Weight: 84.5 kg

DRUGS (1)
  1. PREGABALIN [Suspect]
     Dates: start: 20131001, end: 20131011

REACTIONS (5)
  - Multi-organ disorder [None]
  - Renal failure [None]
  - Hepatotoxicity [None]
  - Transaminases increased [None]
  - Blood pressure systolic increased [None]
